FAERS Safety Report 23719725 (Version 1)
Quarter: 2024Q2

REPORT INFORMATION
  Report Type: Spontaneous
  Country: US (occurrence: US)
  Receive Date: 20240408
  Receipt Date: 20240408
  Transmission Date: 20240716
  Serious: No
  Sender: FDA-Public Use
  Company Number: US-PFIZER INC-PV202300045924

PATIENT
  Age: 68 Year
  Sex: Female

DRUGS (1)
  1. IBRANCE [Suspect]
     Active Substance: PALBOCICLIB
     Indication: Invasive ductal breast carcinoma
     Dosage: TAKE 125 TABLETS BY MOUTH 1 (ONE) TIME EACH DAY. 3 WEEKS ON 1 WEEK OFF
     Route: 048
     Dates: start: 20230206

REACTIONS (3)
  - Product dose omission in error [Unknown]
  - Hypersensitivity [Unknown]
  - Brain fog [Unknown]

NARRATIVE: CASE EVENT DATE: 20240402
